FAERS Safety Report 4903796-5 (Version None)
Quarter: 2006Q1

REPORT INFORMATION
  Report Type: 
  Country: None (occurrence: None)
  Receive Date: 20060208
  Receipt Date: 20050628
  Transmission Date: 20060701
  Serious: No
  Sender: FDA-Public Use
  Company Number: 2005S100398

PATIENT
  Age: 62 Year
  Sex: Female

DRUGS (4)
  1. PAXIL [Suspect]
     Indication: ANXIETY
     Route: 048
     Dates: end: 20050430
  2. ALPRAZOLAM [Suspect]
     Indication: ANXIETY
     Dosage: .5MG FOUR TIMES PER DAY
     Route: 048
     Dates: start: 20040101
  3. ACETYLSALICYLIC ACID SRT [Concomitant]
  4. ANTIHYPERTENSIVES [Concomitant]

REACTIONS (2)
  - ABNORMAL DREAMS [None]
  - NIGHTMARE [None]
